FAERS Safety Report 26006724 (Version 1)
Quarter: 2025Q4

REPORT INFORMATION
  Report Type: Spontaneous
  Country: US (occurrence: None)
  Receive Date: 20251105
  Receipt Date: 20251105
  Transmission Date: 20260117
  Serious: Yes (unspecified)
  Sender: FDA-CTU
  Company Number: None

PATIENT
  Age: 7 Year
  Sex: Female
  Weight: 25.2 kg

DRUGS (3)
  1. XOLAIR [Suspect]
     Active Substance: OMALIZUMAB
     Indication: Food allergy
     Dosage: OTHER QUANTITY : 75 INJECTION(S)?OTHER FREQUENCY : Q 28 DAYS?
     Route: 058
     Dates: start: 20250430, end: 20250725
  2. AUVI-Q [Concomitant]
     Active Substance: EPINEPHRINE
  3. VITAMINS [Concomitant]
     Active Substance: VITAMINS

REACTIONS (2)
  - Anxiety [None]
  - Panic attack [None]

NARRATIVE: CASE EVENT DATE: 20250801
